FAERS Safety Report 5862130-7 (Version None)
Quarter: 2008Q3

REPORT INFORMATION
  Report Type: 
  Country: None (occurrence: None)
  Receive Date: 20080828
  Receipt Date: 20070928
  Transmission Date: 20090109
  Serious: No
  Sender: FDA-Public Use
  Company Number: A0685022A

PATIENT
  Age: 60 Year
  Sex: Male

DRUGS (3)
  1. ACYCLOVIR [Suspect]
     Indication: GENITAL HERPES
     Route: 048
  2. VALTREX [Suspect]
     Indication: GENITAL HERPES
     Dosage: 1G TWICE PER DAY
     Route: 048
     Dates: start: 20070401, end: 20070801
  3. LAMISIL [Concomitant]

REACTIONS (1)
  - DRUG ERUPTION [None]
